FAERS Safety Report 20551583 (Version 2)
Quarter: 2023Q4

REPORT INFORMATION
  Report Type: Other
  Country: BR (occurrence: None)
  Receive Date: 20220304
  Receipt Date: 20231127
  Transmission Date: 20240109
  Serious: Yes (Other)
  Sender: FDA-Public Use
  Company Number: BR-Saptalis Pharmaceuticals,LLC-000180

PATIENT
  Age: 59 Year
  Sex: Female

DRUGS (3)
  1. METFORMIN [Suspect]
     Active Substance: METFORMIN HYDROCHLORIDE
     Indication: Prolactin-producing pituitary tumour
     Dosage: 1.5 G/DAY P.O.IN THE FORM OF EXTENDED RELEASE TABLETS
     Route: 048
  2. CABERGOLINE [Suspect]
     Active Substance: CABERGOLINE
     Indication: Prolactin-producing pituitary tumour
     Dosage: 5.25 MG/WEEK FOR 18 MONTHS
  3. METFORMIN [Suspect]
     Active Substance: METFORMIN HYDROCHLORIDE
     Indication: Prolactin-producing pituitary tumour
     Dosage: 1.0 G/DAY P.O.IN THE FORM OF EXTENDED RELEASE TABLETS
     Route: 048

REACTIONS (3)
  - Blood prolactin increased [Unknown]
  - Drug intolerance [Unknown]
  - Treatment failure [Unknown]
